FAERS Safety Report 7121355-3 (Version None)
Quarter: 2010Q4

REPORT INFORMATION
  Report Type: 
  Country: None (occurrence: None)
  Receive Date: 20101124
  Receipt Date: 20101117
  Transmission Date: 20110411
  Serious: Yes (Other)
  Sender: FDA-Public Use
  Company Number: US-BAYER-201034368NA

PATIENT
  Age: 51 Year
  Sex: Male
  Weight: 79 kg

DRUGS (13)
  1. MAGNEVIST [Suspect]
     Indication: IMAGING PROCEDURE
     Dosage: TOTAL DAILY DOSE: 20 ML
     Dates: start: 20060206, end: 20060206
  2. OMNISCAN [Suspect]
     Indication: IMAGING PROCEDURE
     Dosage: AS USED: 20 ML
     Route: 042
     Dates: start: 20060112, end: 20060112
  3. OPTIMARK [Suspect]
     Indication: IMAGING PROCEDURE
     Dosage: AS USED: 30 ML
     Route: 042
     Dates: start: 20060525, end: 20060525
  4. MULTIHANCE [Suspect]
     Indication: IMAGING PROCEDURE
  5. UNKNOWN GBCA [Suspect]
     Indication: ANGIOGRAM
     Route: 042
     Dates: start: 20071030, end: 20071030
  6. PROGRAF [Concomitant]
  7. PREDNISONE [Concomitant]
  8. NORVASC [Concomitant]
  9. METOPROLOL SUCCINATE [Concomitant]
  10. CLONIDINE [Concomitant]
  11. WARFARIN SODIUM [Concomitant]
  12. ASPIRIN [Concomitant]
  13. PLAVIX [Concomitant]

REACTIONS (13)
  - DERMATITIS [None]
  - FIBROSIS [None]
  - JOINT CONTRACTURE [None]
  - JOINT RANGE OF MOTION DECREASED [None]
  - NEPHROGENIC SYSTEMIC FIBROSIS [None]
  - OEDEMA [None]
  - PAIN [None]
  - SKIN DISORDER [None]
  - SKIN EXFOLIATION [None]
  - SKIN HYPERPIGMENTATION [None]
  - SKIN HYPERTROPHY [None]
  - SKIN INDURATION [None]
  - SKIN TIGHTNESS [None]
